FAERS Safety Report 5677309-7 (Version None)
Quarter: 2008Q1

REPORT INFORMATION
  Report Type: 
  Country: None (occurrence: None)
  Receive Date: 20080324
  Receipt Date: 20080312
  Transmission Date: 20080703
  Serious: Yes (Death, Other)
  Sender: FDA-Public Use
  Company Number: JP-MERCK-0803USA01961

PATIENT
  Age: 54 Year
  Sex: Female

DRUGS (2)
  1. PRIMAXIN [Suspect]
     Route: 041
  2. [THERAPY UNSPECIFIED] [Concomitant]
     Route: 065

REACTIONS (2)
  - BONE MARROW FAILURE [None]
  - PNEUMONIA [None]
